FAERS Safety Report 24187574 (Version 1)
Quarter: 2024Q3

REPORT INFORMATION
  Report Type: Report from Study
  Country: US (occurrence: None)
  Receive Date: 20240808
  Receipt Date: 20240808
  Transmission Date: 20241017
  Serious: Yes (Hospitalization)
  Sender: ASTRAZENECA
  Company Number: 2021A867386

PATIENT
  Sex: Female

DRUGS (30)
  1. CALQUENCE [Suspect]
     Active Substance: ACALABRUTINIB
     Indication: Non-Hodgkin^s lymphoma
     Route: 048
     Dates: start: 20211203
  2. TYLENOL [Concomitant]
     Active Substance: ACETAMINOPHEN
  3. ACYCLOVIR [Concomitant]
     Active Substance: ACYCLOVIR
  4. ALBUTEROL [Concomitant]
     Active Substance: ALBUTEROL
  5. ALLOPURINOL [Concomitant]
     Active Substance: ALLOPURINOL
  6. ANUSOL NOS [Concomitant]
     Active Substance: BALSAM PERU\BENZYL BENZOATE\BISMUTH HYDROXIDE\BISMUTH SUBGALLATE\HYDROCORTISONE ACETATE\ZINC OXIDE
  7. ATENOLOL [Concomitant]
     Active Substance: ATENOLOL
  8. ATROVENT [Concomitant]
     Active Substance: IPRATROPIUM BROMIDE
  9. AZELASTINE [Concomitant]
     Active Substance: AZELASTINE\AZELASTINE HYDROCHLORIDE
  10. BIOTENE NOS [Concomitant]
     Active Substance: UNSPECIFIED INGREDIENT
  11. CALCIUM GLUCONATE [Concomitant]
     Active Substance: CALCIUM GLUCONATE
  12. DECADRON [Concomitant]
     Active Substance: DEXAMETHASONE
  13. DICYCLOMINE [Concomitant]
     Active Substance: DICYCLOMINE HYDROCHLORIDE
  14. FENTANYL [Concomitant]
     Active Substance: FENTANYL\FENTANYL CITRATE
  15. HERBALS\LAMINARIA JAPONICA [Concomitant]
     Active Substance: HERBALS\LAMINARIA JAPONICA
  16. FUROSEMINDE [Concomitant]
  17. GABAPENTIN [Concomitant]
     Active Substance: GABAPENTIN
  18. HALDOL [Concomitant]
     Active Substance: HALOPERIDOL
  19. HEPARIN [Concomitant]
     Active Substance: HEPARIN SODIUM
  20. LACTULOSE [Concomitant]
     Active Substance: LACTULOSE
  21. MAGNESIUM [Concomitant]
     Active Substance: MAGNESIUM
  22. METHOCARBAMOL [Concomitant]
     Active Substance: METHOCARBAMOL
  23. MORPHINE [Concomitant]
     Active Substance: MORPHINE
  24. NALOXONE [Concomitant]
     Active Substance: NALOXONE
  25. ZOFRAN [Concomitant]
     Active Substance: ONDANSETRON HYDROCHLORIDE
  26. POTASSIUM CHLORIDE [Concomitant]
     Active Substance: POTASSIUM CHLORIDE
  27. COMPAZINE [Concomitant]
     Active Substance: PROCHLORPERAZINE MALEATE
  28. RESTASIS [Concomitant]
     Active Substance: CYCLOSPORINE
  29. SIMETHICONE (DIMETHICONE) [Concomitant]
     Active Substance: DIMETHICONE
  30. ZOLPIDEM [Concomitant]
     Active Substance: ZOLPIDEM TARTRATE

REACTIONS (2)
  - Palpitations [Not Recovered/Not Resolved]
  - Chest pain [Not Recovered/Not Resolved]
